FAERS Safety Report 4353305-7 (Version None)
Quarter: 2004Q2

REPORT INFORMATION
  Report Type: 
  Country: None (occurrence: None)
  Receive Date: 20040429
  Receipt Date: 20040420
  Transmission Date: 20050107
  Serious: Yes (Disabling, Other)
  Sender: FDA-Public Use
  Company Number: 2004026905

PATIENT
  Age: 63 Year
  Sex: Female
  Weight: 99.7913 kg

DRUGS (1)
  1. LIPITOR [Suspect]
     Indication: BLOOD CHOLESTEROL INCREASED
     Dosage: 20 MG (DAILY), ORAL
     Route: 048
     Dates: start: 19990101

REACTIONS (11)
  - BEREAVEMENT REACTION [None]
  - DIFFICULTY IN WALKING [None]
  - FAMILY STRESS [None]
  - GASTROINTESTINAL DISORDER [None]
  - HERPES ZOSTER [None]
  - HOARSENESS [None]
  - IMPAIRED DRIVING ABILITY [None]
  - LARGE INTESTINE ANASTOMOSIS [None]
  - MUSCLE DISORDER [None]
  - POST PROCEDURAL COMPLICATION [None]
  - VOCAL CORD DISORDER [None]
